FAERS Safety Report 10753931 (Version 1)
Quarter: 2015Q1

REPORT INFORMATION
  Report Type: Spontaneous
  Country: US (occurrence: US)
  Receive Date: 20150202
  Receipt Date: 20150202
  Transmission Date: 20150721
  Serious: No
  Sender: FDA-Public Use
  Company Number: US-LEO PHARMA-231412

PATIENT
  Sex: Male

DRUGS (1)
  1. PICATO [Suspect]
     Active Substance: INGENOL MEBUTATE
     Indication: ACTINIC KERATOSIS

REACTIONS (5)
  - Dyspnoea [Unknown]
  - Application site dryness [Recovering/Resolving]
  - Nasal discomfort [Unknown]
  - Oropharyngeal pain [Recovering/Resolving]
  - Application site erythema [Recovering/Resolving]
